FAERS Safety Report 22704061 (Version 2)
Quarter: 2023Q4

REPORT INFORMATION
  Report Type: Spontaneous
  Country: JP (occurrence: JP)
  Receive Date: 20230714
  Receipt Date: 20231106
  Transmission Date: 20240110
  Serious: Yes (Other)
  Sender: FDA-Public Use
  Company Number: JP-TAKEDA-2023TJP000866

PATIENT
  Age: 80 Year

DRUGS (2)
  1. NINLARO [Suspect]
     Active Substance: IXAZOMIB CITRATE
     Indication: Plasma cell myeloma
     Dosage: 3 MILLIGRAM
     Route: 048
     Dates: start: 202212
  2. NINLARO [Suspect]
     Active Substance: IXAZOMIB CITRATE
     Dosage: 2.3 MILLIGRAM
     Route: 048

REACTIONS (5)
  - Sjogren^s syndrome [Not Recovered/Not Resolved]
  - Nausea [Unknown]
  - Diarrhoea [Recovering/Resolving]
  - Coronavirus infection [Recovered/Resolved]
  - Platelet count decreased [Unknown]
